FAERS Safety Report 9259533 (Version 3)
Quarter: 2013Q4

REPORT INFORMATION
  Report Type: Spontaneous
  Country: US (occurrence: US)
  Receive Date: 20130429
  Receipt Date: 20131001
  Transmission Date: 20140711
  Serious: Yes (Other)
  Sender: FDA-Public Use
  Company Number: US-ASTRAZENECA-2013SE27653

PATIENT
  Age: 57 Year
  Sex: Female

DRUGS (21)
  1. NEXIUM [Suspect]
     Indication: DYSPEPSIA
     Route: 048
     Dates: start: 20060809, end: 20091014
  2. NEXIUM [Suspect]
     Indication: DYSPEPSIA
     Route: 048
     Dates: start: 20060809, end: 20091014
  3. NEXIUM [Suspect]
     Indication: GASTROOESOPHAGEAL REFLUX DISEASE
     Route: 048
     Dates: start: 20060809, end: 20091014
  4. NEXIUM [Suspect]
     Indication: DYSPEPSIA
     Route: 048
     Dates: start: 20090928
  5. NEXIUM [Suspect]
     Indication: DYSPEPSIA
     Route: 048
     Dates: start: 20090928
  6. NEXIUM [Suspect]
     Indication: GASTROOESOPHAGEAL REFLUX DISEASE
     Route: 048
     Dates: start: 20090928
  7. OMEPRAZOLE [Suspect]
     Indication: GASTROOESOPHAGEAL REFLUX DISEASE
     Route: 048
     Dates: start: 20091118, end: 2010
  8. OMEPRAZOLE [Suspect]
     Indication: ULCER
     Route: 048
     Dates: start: 20091118, end: 2010
  9. OMEPRAZOLE [Suspect]
     Indication: GASTROOESOPHAGEAL REFLUX DISEASE
     Route: 048
     Dates: start: 20091118
  10. OMEPRAZOLE [Suspect]
     Indication: ULCER
     Route: 048
     Dates: start: 20091118
  11. ESTRADIOL [Concomitant]
  12. LISINOPRIL [Concomitant]
     Indication: BLOOD PRESSURE ABNORMAL
  13. SIMVASTATIN [Concomitant]
     Indication: BLOOD CHOLESTEROL ABNORMAL
  14. ASPIRIN [Concomitant]
     Indication: CARDIAC DISORDER
  15. FISH OIL [Concomitant]
     Indication: CARDIAC DISORDER
  16. LEVOTHYROXINE [Concomitant]
     Indication: THYROID DISORDER
  17. CARISOPRODOL [Concomitant]
     Dates: start: 20100605
  18. HYDROCHLOROT [Concomitant]
     Dates: start: 20100605
  19. PROTONIX [Concomitant]
     Indication: GASTROOESOPHAGEAL REFLUX DISEASE
     Dates: start: 20060701
  20. RANITIDINE [Concomitant]
     Dates: start: 20061011
  21. PREMARIN [Concomitant]

REACTIONS (7)
  - Spinal compression fracture [Unknown]
  - Osteoporosis [Unknown]
  - Bone disorder [Unknown]
  - Multiple fractures [Unknown]
  - Depression [Unknown]
  - Anxiety [Unknown]
  - Bone density decreased [Unknown]
